FAERS Safety Report 7322004-1 (Version None)
Quarter: 2011Q1

REPORT INFORMATION
  Report Type: 
  Country: None (occurrence: None)
  Receive Date: 20110228
  Receipt Date: 20110217
  Transmission Date: 20110831
  Serious: Yes (Other)
  Sender: FDA-Public Use
  Company Number: DE-BAXTER-2011BH001588

PATIENT
  Age: 28 Year
  Sex: Female
  Weight: 53 kg

DRUGS (4)
  1. EXTRANEAL [Suspect]
     Indication: IGA NEPHROPATHY
     Route: 033
     Dates: start: 20110110
  2. PHYSIOSOL IN PLASTIC CONTAINER [Suspect]
     Indication: IGA NEPHROPATHY
     Route: 033
     Dates: start: 20110110
  3. FERRO DUODENAL ^SANOL^ [Concomitant]
     Indication: PRODUCT USED FOR UNKNOWN INDICATION
     Route: 065
  4. CALCIUM ACETATE [Concomitant]
     Indication: PRODUCT USED FOR UNKNOWN INDICATION
     Route: 048

REACTIONS (2)
  - GASTROINTESTINAL DISORDER [None]
  - PERITONITIS BACTERIAL [None]
